FAERS Safety Report 20412733 (Version 2)
Quarter: 2022Q2

REPORT INFORMATION
  Report Type: Report from Study
  Country: US (occurrence: US)
  Receive Date: 20220201
  Receipt Date: 20220406
  Transmission Date: 20220721
  Serious: Yes (Other)
  Sender: FDA-Public Use
  Company Number: US-SANOFI-00701209

PATIENT
  Age: 45 Year
  Sex: Male

DRUGS (2)
  1. TERIFLUNOMIDE [Suspect]
     Active Substance: TERIFLUNOMIDE
     Dosage: 14 MG, QD
     Dates: start: 20210301, end: 202104
  2. TERIFLUNOMIDE [Suspect]
     Active Substance: TERIFLUNOMIDE
     Dosage: 14 MG, QD
     Dates: start: 202108

REACTIONS (14)
  - Blindness transient [Recovered/Resolved]
  - Eye pain [Not Recovered/Not Resolved]
  - Eye disorder [Unknown]
  - Cough [Not Recovered/Not Resolved]
  - Head discomfort [Unknown]
  - Throat clearing [Not Recovered/Not Resolved]
  - COVID-19 [Recovered/Resolved]
  - Headache [Recovering/Resolving]
  - Arthralgia [Unknown]
  - Memory impairment [Unknown]
  - Condition aggravated [Unknown]
  - Upper-airway cough syndrome [Not Recovered/Not Resolved]
  - Snoring [Not Recovered/Not Resolved]
  - Adverse event [Unknown]

NARRATIVE: CASE EVENT DATE: 20210101
